FAERS Safety Report 20918594 (Version 1)
Quarter: 2022Q2

REPORT INFORMATION
  Report Type: Spontaneous
  Country: PL (occurrence: None)
  Receive Date: 20220606
  Receipt Date: 20220606
  Transmission Date: 20220721
  Serious: Yes (Other)
  Sender: FDA-Public Use
  Company Number: PL-ROCHE-3108052

PATIENT
  Age: 45 Year
  Sex: Male

DRUGS (1)
  1. ALECTINIB [Suspect]
     Active Substance: ALECTINIB
     Indication: Non-small cell lung cancer
     Route: 065
     Dates: start: 202009

REACTIONS (4)
  - Thrombocytopenia [Unknown]
  - COVID-19 [Unknown]
  - Decreased appetite [Unknown]
  - Weight decreased [Unknown]
